FAERS Safety Report 8142517-2 (Version None)
Quarter: 2012Q1

REPORT INFORMATION
  Report Type: 
  Country: None (occurrence: None)
  Receive Date: 20120216
  Receipt Date: 20111130
  Transmission Date: 20120608
  Serious: Yes (Hospitalization)
  Sender: FDA-Public Use
  Company Number: US-ASTRAZENECA-2011SE72804

PATIENT
  Age: 62 Year
  Sex: Male
  Weight: 172.4 kg

DRUGS (2)
  1. LOTS OF MEDICATION [Concomitant]
  2. BRILINTA [Suspect]
     Dosage: LODING DOSE OF 180 MG
     Route: 048

REACTIONS (4)
  - HYPERLIPIDAEMIA [None]
  - DYSPNOEA [None]
  - HYPERTENSION [None]
  - DIABETES MELLITUS [None]
